FAERS Safety Report 6301271-7 (Version None)
Quarter: 2009Q3

REPORT INFORMATION
  Report Type: 
  Country: None (occurrence: None)
  Receive Date: 20090805
  Receipt Date: 20090805
  Transmission Date: 20100115
  Serious: No
  Sender: FDA-Public Use
  Company Number: None

PATIENT
  Age: 42 Year
  Sex: Female
  Weight: 88.4514 kg

DRUGS (1)
  1. RISPERDAL [Suspect]
     Indication: DEPRESSION
     Dates: start: 20001101, end: 20090804

REACTIONS (4)
  - FEELING HOT [None]
  - IMPAIRED WORK ABILITY [None]
  - MALAISE [None]
  - TEMPERATURE INTOLERANCE [None]
